FAERS Safety Report 12898738 (Version 4)
Quarter: 2016Q4

REPORT INFORMATION
  Report Type: Report from Study
  Country: US (occurrence: US)
  Receive Date: 20161101
  Receipt Date: 20161205
  Transmission Date: 20170207
  Serious: Yes (Hospitalization)
  Sender: FDA-Public Use
  Company Number: US-ROCHE-1848097

PATIENT
  Age: 70 Year
  Sex: Female
  Weight: 69.3 kg

DRUGS (4)
  1. ATEZOLIZUMAB [Suspect]
     Active Substance: ATEZOLIZUMAB
     Indication: NON-SMALL CELL LUNG CANCER STAGE IV
     Dosage: MOST RECENT DOSE ADMINISTERED ON 05/OCT/2016, PRIOR TO THE EVENTS
     Route: 042
  2. PACLITAXEL. [Suspect]
     Active Substance: PACLITAXEL
     Indication: NON-SMALL CELL LUNG CANCER STAGE IV
     Dosage: MOST RECENT DOSE (340 MG) ADMINISTERED ON 05/OCT/2016, PRIOR TO THE EVENTS
     Route: 042
  3. CARBOPLATIN. [Suspect]
     Active Substance: CARBOPLATIN
     Indication: NON-SMALL CELL LUNG CANCER STAGE IV
     Dosage: TARGET AUC = 6 MG/ML/MIN?MOST RECENT DOSE (394 MG) ADMINISTERED ON 05/OCT/2016, PRIOR TO THE EVENTS
     Route: 042
  4. PRBC [Concomitant]
     Indication: ANAEMIA
     Dosage: 1 UNIT
     Route: 065

REACTIONS (2)
  - Haematochezia [Recovering/Resolving]
  - Lethargy [Recovering/Resolving]

NARRATIVE: CASE EVENT DATE: 20161026
